FAERS Safety Report 6801029-6 (Version None)
Quarter: 2010Q2

REPORT INFORMATION
  Report Type: 
  Country: None (occurrence: None)
  Receive Date: 20100629
  Receipt Date: 20070514
  Transmission Date: 20101027
  Serious: No
  Sender: FDA-Public Use
  Company Number: US-PFIZER INC-2007036676

PATIENT
  Sex: Female
  Weight: 72.27 kg

DRUGS (10)
  1. XALATAN [Suspect]
     Indication: INTRAOCULAR PRESSURE INCREASED
     Dates: start: 20070503
  2. PLAVIX [Concomitant]
  3. SIMVASTATIN [Concomitant]
  4. DILTIAZEM HYDROCHLORIDE [Concomitant]
  5. POTASSIUM [Concomitant]
  6. ALTACE [Concomitant]
  7. HYDROCHLOROTHIAZIDE [Concomitant]
  8. FOLIC ACID [Concomitant]
  9. SOMA [Concomitant]
  10. NITROGLYCERIN [Concomitant]

REACTIONS (3)
  - DRUG ADMINISTRATION ERROR [None]
  - EYE IRRITATION [None]
  - INCORRECT DOSE ADMINISTERED [None]
